FAERS Safety Report 25441955 (Version 2)
Quarter: 2025Q4

REPORT INFORMATION
  Report Type: Spontaneous
  Country: EU (occurrence: EU)
  Receive Date: 20250616
  Receipt Date: 20251217
  Transmission Date: 20260118
  Serious: Yes (Hospitalization, Other)
  Sender: PFIZER
  Company Number: EU-002147023-NVSC2025DE089770

PATIENT
  Sex: Female

DRUGS (10)
  1. METHOTREXATE SODIUM [Suspect]
     Active Substance: METHOTREXATE SODIUM
     Dosage: 7.5 UNK
     Route: 058
     Dates: start: 20230617, end: 20240306
  2. HYRIMOZ [Suspect]
     Active Substance: ADALIMUMAB-ADAZ
     Dosage: 40 MG
     Route: 065
     Dates: start: 20220428, end: 20220809
  3. CELECOXIB [Suspect]
     Active Substance: CELECOXIB
     Dosage: 200 MG
     Route: 065
     Dates: start: 20230216, end: 20230926
  4. ETORICOXIB [Suspect]
     Active Substance: ETORICOXIB
     Dosage: 90 MG
     Route: 065
     Dates: start: 20211008, end: 20221116
  5. IBUPROFEN [Suspect]
     Active Substance: IBUPROFEN
     Dosage: 600 MG
     Route: 065
     Dates: start: 20221117, end: 20230215
  6. IBUPROFEN [Suspect]
     Active Substance: IBUPROFEN
     Dosage: 1600 MG
     Route: 065
     Dates: start: 20230927, end: 20240319
  7. SECUKINUMAB [Suspect]
     Active Substance: SECUKINUMAB
     Indication: Axial spondyloarthritis
     Dosage: 300 MG
     Route: 065
     Dates: start: 20220810, end: 20230215
  8. SECUKINUMAB [Suspect]
     Active Substance: SECUKINUMAB
     Indication: Psoriatic arthropathy
  9. TREMFYA [Concomitant]
     Active Substance: GUSELKUMAB
     Dosage: 100 MG
     Route: 065
     Dates: start: 20230216, end: 20240306
  10. ETANERCEPT [Concomitant]
     Active Substance: ETANERCEPT
     Dosage: 50 MG
     Route: 065
     Dates: start: 20211015

REACTIONS (3)
  - Lung adenocarcinoma stage IV [Unknown]
  - Pericardial effusion malignant [Unknown]
  - Asthma [Unknown]

NARRATIVE: CASE EVENT DATE: 20231215
